FAERS Safety Report 14624791 (Version 2)
Quarter: 2018Q1

REPORT INFORMATION
  Report Type: Spontaneous
  Country: US (occurrence: US)
  Receive Date: 20180312
  Receipt Date: 20180326
  Transmission Date: 20180509
  Serious: Yes (Other)
  Sender: FDA-Public Use
  Company Number: US-PFIZER INC-2018098724

PATIENT
  Age: 52 Year
  Sex: Female
  Weight: 87.75 kg

DRUGS (1)
  1. IBRANCE [Suspect]
     Active Substance: PALBOCICLIB
     Indication: BREAST CANCER FEMALE
     Dosage: 125 MG, CYCLIC (DAY 1-21Q 28 DAYS)
     Route: 048
     Dates: start: 20180302

REACTIONS (4)
  - Cancer pain [Unknown]
  - Chest pain [Unknown]
  - Pain in extremity [Unknown]
  - Neoplasm progression [Unknown]
